FAERS Safety Report 9556283 (Version 2)
Quarter: 2013Q3

REPORT INFORMATION
  Report Type: Report from Study
  Country: US (occurrence: US)
  Receive Date: 20130926
  Receipt Date: 20130926
  Transmission Date: 20140515
  Serious: Yes (Other)
  Sender: FDA-Public Use
  Company Number: PHEH2012US023122

PATIENT
  Age: 56 Year
  Sex: Female

DRUGS (11)
  1. GLEEVEC [Suspect]
     Indication: CHRONIC MYELOID LEUKAEMIA
     Dosage: 400 MG, DAILY
     Route: 048
     Dates: start: 20080110
  2. GLEEVEC [Suspect]
     Dosage: 400 MG, DAILY
     Route: 048
     Dates: start: 20080118
  3. CYMBALTA [Concomitant]
     Indication: ARTHRALGIA
     Dosage: 40 MG, DAILY
     Route: 048
     Dates: start: 20091028
  4. CYMBALTA [Concomitant]
     Indication: MYALGIA
  5. LASIX [Concomitant]
     Indication: PERIORBITAL OEDEMA
     Dosage: 60 MG, BID
     Route: 048
     Dates: start: 20110519
  6. PROPANOLOL [Concomitant]
     Dosage: UNK UKN, UNK
  7. HYDROCODONE [Concomitant]
     Indication: ARTHRALGIA
     Dosage: 5/500 MG, UNK
     Route: 048
     Dates: start: 20091028
  8. HYDROCODONE [Concomitant]
     Indication: MYALGIA
  9. LOPERAMIDE [Concomitant]
     Indication: DIARRHOEA
     Dosage: 1 DF, UNK
     Dates: start: 20100203
  10. LEVOTHYROXINE [Concomitant]
     Dosage: 50 UG, UNK
  11. LEVOTHYROXINE [Concomitant]
     Dosage: 75 UG, UNK

REACTIONS (8)
  - Lung neoplasm malignant [Unknown]
  - Second primary malignancy [Unknown]
  - Arthralgia [Recovering/Resolving]
  - Muscle spasms [Recovering/Resolving]
  - Diarrhoea [Recovering/Resolving]
  - Periorbital oedema [Recovering/Resolving]
  - Myalgia [Not Recovered/Not Resolved]
  - Ocular hyperaemia [Recovered/Resolved]
